FAERS Safety Report 14964887 (Version 3)
Quarter: 2021Q4

REPORT INFORMATION
  Report Type: Report from Study
  Country: CA (occurrence: CA)
  Receive Date: 20180601
  Receipt Date: 20211028
  Transmission Date: 20220303
  Serious: Yes (Other)
  Sender: FDA-Public Use
  Company Number: PHHY2017CA087116

PATIENT
  Sex: Female

DRUGS (1)
  1. GILENYA [Suspect]
     Active Substance: FINGOLIMOD HYDROCHLORIDE
     Indication: Relapsing-remitting multiple sclerosis
     Dosage: UNK
     Route: 048
     Dates: start: 20161028

REACTIONS (7)
  - Multiple sclerosis relapse [Unknown]
  - Multiple sclerosis [Unknown]
  - Mental fatigue [Unknown]
  - Fatigue [Unknown]
  - Hypoaesthesia [Unknown]
  - Balance disorder [Unknown]
  - Lymphocyte count decreased [Unknown]
